FAERS Safety Report 12917104 (Version 1)
Quarter: 2016Q4

REPORT INFORMATION
  Report Type: Spontaneous
  Country: US (occurrence: US)
  Receive Date: 20161107
  Receipt Date: 20161107
  Transmission Date: 20170207
  Serious: No
  Sender: FDA-Public Use
  Company Number: US-JAZZ-2016-US-017504

PATIENT
  Sex: Female

DRUGS (23)
  1. VITAMIN C [Concomitant]
     Active Substance: ASCORBIC ACID
  2. CLONAZEPAM. [Concomitant]
     Active Substance: CLONAZEPAM
  3. NORCO [Concomitant]
     Active Substance: ACETAMINOPHEN\HYDROCODONE BITARTRATE
  4. FISH OIL [Concomitant]
     Active Substance: FISH OIL
  5. XYREM [Suspect]
     Active Substance: SODIUM OXYBATE
     Dosage: 3 G, FIRST DOSE
     Route: 048
     Dates: start: 201606
  6. MULTIVITAMIN [Concomitant]
     Active Substance: VITAMINS
  7. PROBIOTIC [Concomitant]
     Active Substance: PROBIOTICS NOS
  8. BUPROPION. [Concomitant]
     Active Substance: BUPROPION
  9. XYREM [Suspect]
     Active Substance: SODIUM OXYBATE
     Dosage: 2.25 G, SECOND DOSE
     Route: 048
     Dates: start: 201606
  10. VYVANSE [Concomitant]
     Active Substance: LISDEXAMFETAMINE DIMESYLATE
  11. AMITRIPTYLINE HCL [Concomitant]
     Active Substance: AMITRIPTYLINE
  12. FLUOCINONIDE. [Concomitant]
     Active Substance: FLUOCINONIDE
  13. MAGNESIUM [Concomitant]
     Active Substance: MAGNESIUM
  14. XYREM [Suspect]
     Active Substance: SODIUM OXYBATE
     Indication: CATAPLEXY
     Dosage: 3 G, BID
     Route: 048
     Dates: start: 201606, end: 201609
  15. XYREM [Suspect]
     Active Substance: SODIUM OXYBATE
     Indication: NARCOLEPSY
     Dosage: 2.25 G, BID
     Route: 048
     Dates: start: 201605, end: 201606
  16. CURCUMIN [Concomitant]
     Active Substance: CURCUMIN
  17. CYMBALTA [Concomitant]
     Active Substance: DULOXETINE HYDROCHLORIDE
  18. TRAMADOL HCL [Concomitant]
     Active Substance: TRAMADOL HYDROCHLORIDE
  19. CLOBETASOL [Concomitant]
     Active Substance: CLOBETASOL
  20. SYEDA [Concomitant]
     Active Substance: DROSPIRENONE\ETHINYL ESTRADIOL
  21. CLARAVIS [Concomitant]
     Active Substance: ISOTRETINOIN
  22. FIBER [Concomitant]
     Active Substance: PSYLLIUM HUSK
  23. VITAMIN D3 [Concomitant]
     Active Substance: CHOLECALCIFEROL

REACTIONS (1)
  - Unevaluable event [Unknown]

NARRATIVE: CASE EVENT DATE: 2016
